FAERS Safety Report 22590386 (Version 2)
Quarter: 2023Q2

REPORT INFORMATION
  Report Type: Spontaneous
  Country: PT (occurrence: PT)
  Receive Date: 20230612
  Receipt Date: 20230621
  Transmission Date: 20230722
  Serious: Yes (Hospitalization)
  Sender: FDA-Public Use
  Company Number: PT-SA-2023SA177761

PATIENT
  Age: 14 Year
  Sex: Male

DRUGS (10)
  1. ALPROLIX [Suspect]
     Active Substance: EFTRENONACOG ALFA
     Indication: Factor IX deficiency
     Dosage: 3000 IU (40IU/KG), QW
     Route: 065
     Dates: end: 20230124
  2. ALPROLIX [Suspect]
     Active Substance: EFTRENONACOG ALFA
     Indication: Factor IX deficiency
     Dosage: 3000 IU (40IU/KG), QW
     Route: 065
     Dates: end: 20230124
  3. ALPROLIX [Suspect]
     Active Substance: EFTRENONACOG ALFA
     Dosage: 3000 IU
     Route: 065
     Dates: start: 20230126
  4. ALPROLIX [Suspect]
     Active Substance: EFTRENONACOG ALFA
     Dosage: 3000 IU
     Route: 065
     Dates: start: 20230126
  5. ALPROLIX [Suspect]
     Active Substance: EFTRENONACOG ALFA
     Dosage: 2000 IU
     Route: 065
     Dates: start: 20230128
  6. ALPROLIX [Suspect]
     Active Substance: EFTRENONACOG ALFA
     Dosage: 2000 IU
     Route: 065
     Dates: start: 20230128
  7. ALPROLIX [Suspect]
     Active Substance: EFTRENONACOG ALFA
     Dosage: 3000 IU, QW
     Route: 065
     Dates: start: 20230131
  8. ALPROLIX [Suspect]
     Active Substance: EFTRENONACOG ALFA
     Dosage: 3000 IU, QW
     Route: 065
     Dates: start: 20230131
  9. ALPROLIX [Suspect]
     Active Substance: EFTRENONACOG ALFA
     Dosage: 3000 U, (40IU/KG) 96H (4 DAYS)
     Route: 065
  10. ALPROLIX [Suspect]
     Active Substance: EFTRENONACOG ALFA
     Dosage: 3000 U, (40IU/KG) 96H (4 DAYS)
     Route: 065

REACTIONS (9)
  - Subcutaneous haematoma [Recovering/Resolving]
  - Haematoma muscle [Recovering/Resolving]
  - Peripheral swelling [Recovering/Resolving]
  - Injury [Recovering/Resolving]
  - Limb mass [Recovering/Resolving]
  - Gait disturbance [Recovering/Resolving]
  - Fall [Unknown]
  - Prothrombin time prolonged [Unknown]
  - Coagulation factor IX level decreased [Unknown]

NARRATIVE: CASE EVENT DATE: 20230101
